FAERS Safety Report 15965150 (Version 1)
Quarter: 2019Q1

REPORT INFORMATION
  Report Type: Spontaneous
  Country: PT (occurrence: PT)
  Receive Date: 20190215
  Receipt Date: 20190215
  Transmission Date: 20190418
  Serious: Yes (Hospitalization, Other)
  Sender: FDA-Public Use
  Company Number: PT-AUROBINDO-AUR-APL-2019-008067

PATIENT

DRUGS (4)
  1. AMIODARONE [Suspect]
     Active Substance: AMIODARONE
     Indication: HEART RATE IRREGULAR
  2. ENOXAPARIN SODIUM. [Suspect]
     Active Substance: ENOXAPARIN SODIUM
     Indication: HYPOCOAGULABLE STATE
     Dosage: UNK
     Route: 065
  3. ENOXAPARIN SODIUM. [Suspect]
     Active Substance: ENOXAPARIN SODIUM
     Indication: PLATELET AGGREGATION INHIBITION
  4. AMIODARONE [Suspect]
     Active Substance: AMIODARONE
     Indication: SINUS RHYTHM
     Dosage: UNK
     Route: 065

REACTIONS (10)
  - Abdominal pain lower [Unknown]
  - Nausea [Unknown]
  - Blood creatinine increased [Unknown]
  - Transaminases increased [Unknown]
  - Blood disorder [Unknown]
  - Blood lactate dehydrogenase increased [Unknown]
  - Renal artery thrombosis [Unknown]
  - Inflammatory marker increased [Unknown]
  - Vomiting [Unknown]
  - Pyrexia [Unknown]
